FAERS Safety Report 8827780 (Version 1)
Quarter: 2012Q4

REPORT INFORMATION
  Report Type: 
  Country: US (occurrence: US)
  Receive Date: 20121005
  Receipt Date: 20121005
  Transmission Date: 20130627
  Serious: No
  Sender: FDA-Public Use
  Company Number: US-VERTEX PHARMACEUTICAL INC.-2012-021807

PATIENT
  Sex: Female
  Weight: 69 kg

DRUGS (3)
  1. VX-950 [Suspect]
     Indication: HEPATITIS C
     Dosage: 750 mg, tid
     Route: 048
     Dates: start: 201203
  2. PEGINTRON                          /01543001/ [Suspect]
     Indication: HEPATITIS C
     Dosage: 180 ?g, UNK
     Route: 058
     Dates: start: 201203, end: 20120831
  3. RIBASPHERE [Suspect]
     Indication: HEPATITIS C
     Dosage: 600AM 400PM
     Route: 048
     Dates: start: 201203, end: 20120831

REACTIONS (3)
  - Mood swings [Not Recovered/Not Resolved]
  - Alopecia [Unknown]
  - Rash [Unknown]
